FAERS Safety Report 4604531-0 (Version None)
Quarter: 2005Q1

REPORT INFORMATION
  Report Type: 
  Country: None (occurrence: None)
  Receive Date: 20050310
  Receipt Date: 20050302
  Transmission Date: 20050727
  Serious: Yes (Disabling)
  Sender: FDA-Public Use
  Company Number: FR-MERCK-0503FRA00015

PATIENT
  Age: 63 Year
  Sex: Female

DRUGS (2)
  1. NOROXIN [Suspect]
     Indication: URINARY TRACT INFECTION
     Route: 048
     Dates: start: 20040201, end: 20040201
  2. NOROXIN [Suspect]
     Route: 048
     Dates: start: 20040901, end: 20041001

REACTIONS (3)
  - ARTHRALGIA [None]
  - MENISCUS LESION [None]
  - URINARY TRACT INFECTION [None]
